FAERS Safety Report 7055585-6 (Version None)
Quarter: 2010Q4

REPORT INFORMATION
  Report Type: 
  Country: None (occurrence: None)
  Receive Date: 20101021
  Receipt Date: 20101008
  Transmission Date: 20110411
  Serious: Yes (Other)
  Sender: FDA-Public Use
  Company Number: PHHY2010CA58863

PATIENT
  Sex: Female

DRUGS (2)
  1. SANDOSTATIN LAR [Suspect]
     Indication: ACROMEGALY
     Dosage: 20 MG, EVERY 4 WEEKS
     Route: 030
     Dates: start: 20100706
  2. METOPROLOL TARTRATE [Concomitant]
     Dosage: 12.5 MG, DAILY

REACTIONS (2)
  - HYPOTENSION [None]
  - PRESYNCOPE [None]
